FAERS Safety Report 24046979 (Version 5)
Quarter: 2025Q2

REPORT INFORMATION
  Report Type: Spontaneous
  Country: US (occurrence: US)
  Receive Date: 20240703
  Receipt Date: 20250520
  Transmission Date: 20250716
  Serious: No
  Sender: SANOFI AVENTIS
  Company Number: US-SA-SAC20240627000446

PATIENT
  Age: 59 Year
  Sex: Male

DRUGS (2)
  1. DUPIXENT [Suspect]
     Active Substance: DUPILUMAB
     Indication: Neurodermatitis
     Route: 058
     Dates: start: 20240522, end: 20240522
  2. DUPIXENT [Suspect]
     Active Substance: DUPILUMAB
     Dosage: 300 MG, QOW
     Route: 058
     Dates: start: 202406, end: 20250103

REACTIONS (15)
  - Fungal infection [Recovered/Resolved]
  - Onychomycosis [Not Recovered/Not Resolved]
  - Fungal foot infection [Not Recovered/Not Resolved]
  - Chest pain [Not Recovered/Not Resolved]
  - Nasopharyngitis [Recovered/Resolved]
  - Cough [Recovered/Resolved]
  - Tinea cruris [Unknown]
  - Neurodermatitis [Not Recovered/Not Resolved]
  - Nodule [Not Recovered/Not Resolved]
  - Abscess limb [Not Recovered/Not Resolved]
  - Bloody discharge [Not Recovered/Not Resolved]
  - Scar [Not Recovered/Not Resolved]
  - Condition aggravated [Not Recovered/Not Resolved]
  - Rash [Not Recovered/Not Resolved]
  - Arthralgia [Unknown]

NARRATIVE: CASE EVENT DATE: 20240101
